FAERS Safety Report 17362370 (Version 2)
Quarter: 2020Q4

REPORT INFORMATION
  Report Type: Spontaneous
  Country: CA (occurrence: CA)
  Receive Date: 20200203
  Receipt Date: 20201102
  Transmission Date: 20210113
  Serious: Yes (Other)
  Sender: FDA-Public Use
  Company Number: CA-SHIRE-CA202002535

PATIENT

DRUGS (6)
  1. VENLAFAXINE HYDROCHLORIDE. [Concomitant]
     Active Substance: VENLAFAXINE HYDROCHLORIDE
     Indication: DEPRESSION
     Dosage: UNK
     Route: 065
  2. DEXTROAMPHET SACCHARAT, AMPHET ASPARTATE, DEXTROAMPHET SULFATE AND AMPHET SULFAT [Suspect]
     Active Substance: AMPHETAMINE ASPARTATE\AMPHETAMINE SULFATE\DEXTROAMPHETAMINE SACCHARATE\DEXTROAMPHETAMINE SULFATE
     Indication: PRODUCT USED FOR UNKNOWN INDICATION
     Dosage: UNK
     Route: 065
  3. PERCOCET [Suspect]
     Active Substance: ACETAMINOPHEN\OXYCODONE HYDROCHLORIDE
     Indication: PRODUCT USED FOR UNKNOWN INDICATION
     Dosage: UNK
     Route: 065
  4. OXYCONTIN [Suspect]
     Active Substance: OXYCODONE HYDROCHLORIDE
     Indication: PRODUCT USED FOR UNKNOWN INDICATION
     Dosage: UNK
     Route: 065
  5. MORPHINE SULFATE. [Suspect]
     Active Substance: MORPHINE SULFATE
     Indication: PRODUCT USED FOR UNKNOWN INDICATION
     Dosage: UNK
     Route: 065
  6. VYVANSE [Suspect]
     Active Substance: LISDEXAMFETAMINE DIMESYLATE
     Indication: ATTENTION DEFICIT HYPERACTIVITY DISORDER
     Dosage: UNK
     Route: 065

REACTIONS (23)
  - Emotional poverty [Unknown]
  - Fatigue [Unknown]
  - Anxiety [Unknown]
  - Irritability [Unknown]
  - Euphoric mood [Unknown]
  - Abdominal pain upper [Unknown]
  - Drug dependence [Unknown]
  - Crying [Unknown]
  - Lethargy [Unknown]
  - Feeling cold [Unknown]
  - Depressed mood [Unknown]
  - Decreased appetite [Unknown]
  - Feeling abnormal [Unknown]
  - Anger [Unknown]
  - Nausea [Unknown]
  - Drug abuse [Unknown]
  - Mental impairment [Unknown]
  - Drug withdrawal syndrome [Unknown]
  - Psychiatric symptom [Unknown]
  - Thinking abnormal [Unknown]
  - General physical health deterioration [Unknown]
  - Hot flush [Unknown]
  - Weight decreased [Unknown]
